FAERS Safety Report 7436762-9 (Version None)
Quarter: 2011Q2

REPORT INFORMATION
  Report Type: 
  Country: None (occurrence: None)
  Receive Date: 20110426
  Receipt Date: 20110330
  Transmission Date: 20111010
  Serious: No
  Sender: FDA-Public Use
  Company Number: US-B.I. PHARMACEUTICALS,INC./RIDGEFIELD-2011-BP-09664BP

PATIENT
  Sex: Male

DRUGS (7)
  1. SPIRIVA [Suspect]
     Indication: ASTHMA
     Dosage: 18 MCG
     Route: 055
     Dates: start: 20110217
  2. MAXAIR [Concomitant]
     Indication: ASTHMA
     Route: 055
     Dates: start: 20110217
  3. LIPITOR [Concomitant]
     Indication: BLOOD CHOLESTEROL INCREASED
  4. CELEBREX [Concomitant]
     Indication: ARTHRITIS
  5. NORVASC [Concomitant]
     Indication: HYPERTENSION
  6. ASTEPRO [Concomitant]
     Indication: SEASONAL ALLERGY
     Route: 045
  7. ATACAND [Concomitant]
     Indication: HYPERTENSION

REACTIONS (1)
  - ASTHMA [None]
